FAERS Safety Report 5567019-9 (Version None)
Quarter: 2007Q4

REPORT INFORMATION
  Report Type: 
  Country: None (occurrence: None)
  Receive Date: 20071218
  Receipt Date: 20071218
  Transmission Date: 20080405
  Serious: No
  Sender: FDA-Public Use
  Company Number: None

PATIENT
  Age: 41 Year
  Sex: Male
  Weight: 80.2867 kg

DRUGS (9)
  1. DIVALPROEX SODIUM [Suspect]
     Dosage: 500MG BID PO
     Route: 048
  2. METHADONE HCL [Concomitant]
  3. TESTOSTERONE TD [Concomitant]
  4. NICOTINE [Concomitant]
  5. COMBIVENT [Concomitant]
  6. FIBERCON [Concomitant]
  7. HYDROXYZINE [Concomitant]
  8. CITALOPRAM HYDROBROMIDE [Concomitant]
  9. QUETIAPINE [Concomitant]

REACTIONS (3)
  - DERMATITIS ACNEIFORM [None]
  - DRUG ERUPTION [None]
  - SCRATCH [None]
